FAERS Safety Report 20912027 (Version 4)
Quarter: 2022Q4

REPORT INFORMATION
  Report Type: Spontaneous
  Country: US (occurrence: US)
  Receive Date: 20220603
  Receipt Date: 20221229
  Transmission Date: 20230113
  Serious: Yes (Other)
  Sender: FDA-Public Use
  Company Number: US-BRISTOL-MYERS SQUIBB COMPANY-2022-049741

PATIENT
  Age: 75 Year
  Sex: Female
  Weight: 93.5 kg

DRUGS (2)
  1. POMALYST [Suspect]
     Active Substance: POMALIDOMIDE
     Indication: Plasma cell myeloma
     Dosage: D1-14 Q28 DAYS
     Route: 048
     Dates: start: 20210909
  2. POMALYST [Suspect]
     Active Substance: POMALIDOMIDE
     Dosage: DAILY DAYS 1-14, EVERY 28 DAYS
     Route: 048
     Dates: start: 20210909

REACTIONS (9)
  - Fall [Recovering/Resolving]
  - Cellulitis [Recovering/Resolving]
  - Skin infection [Recovering/Resolving]
  - Sinusitis [Not Recovered/Not Resolved]
  - Ear infection [Recovering/Resolving]
  - Joint injury [Recovering/Resolving]
  - Off label use [Unknown]
  - Fatigue [Recovering/Resolving]
  - Influenza like illness [Recovering/Resolving]

NARRATIVE: CASE EVENT DATE: 20220813
